FAERS Safety Report 5957474-4 (Version None)
Quarter: 2008Q4

REPORT INFORMATION
  Report Type: 
  Country: None (occurrence: None)
  Receive Date: 20081114
  Receipt Date: 20081104
  Transmission Date: 20090506
  Serious: Yes (Hospitalization)
  Sender: FDA-Public Use
  Company Number: 2008-186459-NL

PATIENT
  Sex: Female

DRUGS (1)
  1. NUVARING [Suspect]
     Indication: CONTRACEPTION
     Dosage: 3 WEEKS, IN , 1 WEEK OUT

REACTIONS (3)
  - OVARIAN CYST [None]
  - VAGINAL INFECTION [None]
  - VULVOVAGINAL PRURITUS [None]
